FAERS Safety Report 4652050-8 (Version None)
Quarter: 2005Q2

REPORT INFORMATION
  Report Type: 
  Country: None (occurrence: None)
  Receive Date: 20050502
  Receipt Date: 20050419
  Transmission Date: 20051028
  Serious: Yes (Death, Hospitalization, Other)
  Sender: FDA-Public Use
  Company Number: 2003034801

PATIENT
  Age: 52 Year
  Sex: Male

DRUGS (7)
  1. GEODON [Suspect]
     Indication: ANXIETY
     Dosage: ORAL
     Route: 048
     Dates: start: 20011219, end: 20030801
  2. GEODON [Suspect]
     Indication: DEPRESSION
     Dosage: ORAL
     Route: 048
     Dates: start: 20011219, end: 20030801
  3. GEODON [Suspect]
     Indication: PARANOIA
     Dosage: ORAL
     Route: 048
     Dates: start: 20011219, end: 20030801
  4. LITHIUM CARBONATE [Suspect]
     Indication: ANGER
     Dosage: 900 MG (2 IN 1 D), ORAL
     Route: 048
     Dates: start: 20030301, end: 20030801
  5. LITHIUM CARBONATE [Suspect]
     Indication: DEPRESSION
     Dosage: 900 MG (2 IN 1 D), ORAL
     Route: 048
     Dates: start: 20030301, end: 20030801
  6. BUPROPION HYDROCHLORIDE [Concomitant]
  7. ANTI-DIABETICS (ANTI-DIABETICS) [Concomitant]

REACTIONS (7)
  - ANGER [None]
  - CHEST PAIN [None]
  - DEPRESSED LEVEL OF CONSCIOUSNESS [None]
  - DIABETIC HYPERGLYCAEMIC COMA [None]
  - DIZZINESS [None]
  - GLUCOSE TOLERANCE IMPAIRED [None]
  - HEPATITIS C [None]
